FAERS Safety Report 24411055 (Version 1)
Quarter: 2024Q4

REPORT INFORMATION
  Report Type: Spontaneous
  Country: US (occurrence: None)
  Receive Date: 20241004
  Receipt Date: 20241004
  Transmission Date: 20250114
  Serious: Yes (Life-Threatening)
  Sender: Public
  Company Number: None

PATIENT
  Age: 78 Year
  Sex: Female
  Weight: 76.2 kg

DRUGS (2)
  1. LUMASON [Suspect]
     Active Substance: SULFUR HEXAFLUORIDE
  2. DEFINITY [Suspect]
     Active Substance: PERFLUTREN

REACTIONS (2)
  - Dizziness [None]
  - Dyspnoea [None]

NARRATIVE: CASE EVENT DATE: 20241004
